FAERS Safety Report 5551405-7 (Version None)
Quarter: 2007Q4

REPORT INFORMATION
  Report Type: 
  Country: None (occurrence: None)
  Receive Date: 20071212
  Receipt Date: 20071130
  Transmission Date: 20080405
  Serious: Yes (Hospitalization)
  Sender: FDA-Public Use
  Company Number: KR-WYE-H01515707

PATIENT
  Sex: Female
  Weight: 72.8 kg

DRUGS (15)
  1. SIROLIMUS [Suspect]
     Indication: PROPHYLAXIS AGAINST TRANSPLANT REJECTION
     Route: 048
     Dates: start: 20071101, end: 20071120
  2. BUSCOPAN [Concomitant]
     Indication: PAIN
     Route: 048
     Dates: start: 20071102, end: 20071108
  3. FELODIPINE [Concomitant]
     Indication: HYPERTENSION
     Route: 048
     Dates: start: 20071102
  4. SANDIMMUNE [Concomitant]
     Indication: PROPHYLAXIS AGAINST TRANSPLANT REJECTION
     Route: 048
     Dates: start: 20071103, end: 20071121
  5. PREDNISOLONE [Concomitant]
     Indication: PROPHYLAXIS AGAINST TRANSPLANT REJECTION
     Route: 048
     Dates: start: 20071105
  6. DILATREND [Concomitant]
     Indication: HYPERTENSION
     Route: 048
     Dates: start: 20071114
  7. CEFOTIAM HYDROCHLORIDE [Concomitant]
     Route: 042
     Dates: start: 20071101
  8. PANCRELIPASE [Concomitant]
     Indication: PROPHYLAXIS
     Route: 048
     Dates: start: 20071102
  9. DIOVAN [Concomitant]
     Indication: HYPERTENSION
     Route: 048
     Dates: start: 20071109, end: 20071117
  10. LASIX [Concomitant]
     Indication: DIURETIC THERAPY
     Route: 048
     Dates: start: 20071111
  11. PANTOPRAZOLE SODIUM [Concomitant]
     Indication: PROPHYLAXIS
     Route: 042
     Dates: start: 20071112, end: 20071121
  12. ULCERMIN [Concomitant]
     Indication: PROPHYLAXIS
     Route: 048
     Dates: start: 20071112
  13. SULFAMETHOXAZOLE AND TRIMETHOPRIM [Concomitant]
     Indication: INFECTION PROPHYLAXIS
     Dosage: 1.5 BID
     Route: 048
     Dates: start: 20071102, end: 20071107
  14. SULFAMETHOXAZOLE AND TRIMETHOPRIM [Concomitant]
     Route: 048
     Dates: start: 20071108, end: 20071127
  15. ADALAT [Concomitant]
     Indication: HYPERTENSION
     Route: 048
     Dates: start: 20071102, end: 20071103

REACTIONS (5)
  - KIDNEY TRANSPLANT REJECTION [None]
  - LYMPHORRHOEA [None]
  - RENAL TUBULAR NECROSIS [None]
  - WOUND DEHISCENCE [None]
  - WOUND HAEMORRHAGE [None]
